FAERS Safety Report 6355023-2 (Version None)
Quarter: 2009Q3

REPORT INFORMATION
  Report Type: 
  Country: None (occurrence: None)
  Receive Date: 20090914
  Receipt Date: 20090902
  Transmission Date: 20100115
  Serious: Yes (Death, Hospitalization)
  Sender: FDA-Public Use
  Company Number: B0591051A

PATIENT
  Sex: Female

DRUGS (11)
  1. AVANDIA [Suspect]
     Route: 048
     Dates: end: 20090818
  2. HOLOXAN [Suspect]
     Indication: DRUG USE FOR UNKNOWN INDICATION
     Dosage: 1.88G PER DAY
     Route: 042
     Dates: start: 20090810, end: 20090814
  3. ETOPOSIDE [Suspect]
     Indication: DRUG USE FOR UNKNOWN INDICATION
     Dosage: 189MG PER DAY
     Route: 042
     Dates: start: 20090810, end: 20090812
  4. ARACYTINE [Suspect]
     Indication: DRUG USE FOR UNKNOWN INDICATION
     Dosage: 127MG PER DAY
     Route: 042
     Dates: start: 20090810, end: 20090812
  5. METHOTREXATE [Suspect]
     Indication: DRUG USE FOR UNKNOWN INDICATION
     Route: 042
     Dates: start: 20090814, end: 20090814
  6. UROMITEXAN [Suspect]
     Indication: DRUG USE FOR UNKNOWN INDICATION
     Dosage: 500MG THREE TIMES PER DAY
     Route: 042
     Dates: start: 20090810, end: 20090814
  7. LASIX [Suspect]
     Indication: DRUG USE FOR UNKNOWN INDICATION
     Route: 042
     Dates: start: 20090806, end: 20090818
  8. DRIPTANE [Suspect]
     Indication: DRUG USE FOR UNKNOWN INDICATION
     Route: 048
     Dates: end: 20090819
  9. GLUCOPHAGE [Suspect]
     Route: 048
     Dates: end: 20090818
  10. KEPPRA [Suspect]
     Indication: DRUG USE FOR UNKNOWN INDICATION
     Route: 048
     Dates: end: 20090817
  11. FOLINATE CALCIUM [Suspect]
     Indication: DRUG USE FOR UNKNOWN INDICATION
     Route: 048
     Dates: end: 20090819

REACTIONS (7)
  - CONFUSIONAL STATE [None]
  - ESCHERICHIA SEPSIS [None]
  - HYPERTHERMIA [None]
  - HYPOTENSION [None]
  - LEUKOPENIA [None]
  - RENAL FAILURE ACUTE [None]
  - SOMNOLENCE [None]
